FAERS Safety Report 7417669-X (Version None)
Quarter: 2011Q2

REPORT INFORMATION
  Report Type: 
  Country: None (occurrence: None)
  Receive Date: 20110415
  Receipt Date: 20110405
  Transmission Date: 20111010
  Serious: Yes (Hospitalization, Other)
  Sender: FDA-Public Use
  Company Number: US-JNJFOC-20110403134

PATIENT
  Sex: Female
  Weight: 85.28 kg

DRUGS (9)
  1. DURAGESIC [Suspect]
     Route: 062
  2. VITAMIN B6 [Concomitant]
     Indication: PROPHYLAXIS
     Route: 048
  3. TRAZODONE [Concomitant]
     Indication: NIGHTMARE
     Dosage: 2 AT NIGHT
     Route: 048
  4. VENTOLIN [Concomitant]
     Indication: ASTHMA
     Dosage: 90 UG/2 PUFFS AS NEEDED
     Route: 055
  5. DURAGESIC [Suspect]
     Indication: BACK PAIN
     Route: 062
  6. PROTONIX [Concomitant]
     Indication: ULCER
     Route: 048
  7. DICLOFENAC SODIUM [Concomitant]
     Indication: ANTIINFLAMMATORY THERAPY
     Route: 048
  8. OXYCODONE [Concomitant]
     Indication: BREAKTHROUGH PAIN
     Dosage: 5/325 MG TABLET/2 TABLETS AS NEEDED
     Route: 048
  9. BACLOFEN [Concomitant]
     Indication: MUSCLE RELAXANT THERAPY
     Route: 048

REACTIONS (15)
  - DEPRESSION [None]
  - BLOOD CHOLESTEROL INCREASED [None]
  - MALAISE [None]
  - RENAL FAILURE [None]
  - NERVE INJURY [None]
  - ARTHROPATHY [None]
  - BLOOD CREATININE ABNORMAL [None]
  - INTERVERTEBRAL DISC DISORDER [None]
  - FALL [None]
  - AMNESIA [None]
  - COMA [None]
  - ROAD TRAFFIC ACCIDENT [None]
  - WEIGHT DECREASED [None]
  - CONSTIPATION [None]
  - ALLERGY TO ANIMAL [None]
